FAERS Safety Report 18250218 (Version 1)
Quarter: 2020Q3

REPORT INFORMATION
  Report Type: Spontaneous
  Country: US (occurrence: US)
  Receive Date: 20200909
  Receipt Date: 20200909
  Transmission Date: 20201103
  Serious: Yes (Hospitalization, Other)
  Sender: FDA-Public Use
  Company Number: US-PURDUE-USA-2020-0165155

PATIENT
  Sex: Male

DRUGS (4)
  1. OXYCODONE HYDROCHLORIDE (SIMILAR TO NDA 22?272) [Suspect]
     Active Substance: OXYCODONE HYDROCHLORIDE
     Indication: PRODUCT USED FOR UNKNOWN INDICATION
     Dosage: UNKNOWN
     Route: 064
  2. COCAINE [Suspect]
     Active Substance: COCAINE
     Indication: PRODUCT USED FOR UNKNOWN INDICATION
     Dosage: UNKNOWN
     Route: 064
  3. HYDROCODONE BITARTRATE AND ACETAMINOPHEN [Suspect]
     Active Substance: ACETAMINOPHEN\HYDROCODONE BITARTRATE
     Indication: PRODUCT USED FOR UNKNOWN INDICATION
     Dosage: UNKNOWN
     Route: 064
  4. DILAUDID [Suspect]
     Active Substance: HYDROMORPHONE HYDROCHLORIDE
     Indication: PRODUCT USED FOR UNKNOWN INDICATION
     Dosage: UNKNOWN
     Route: 064

REACTIONS (20)
  - Hypertonia neonatal [Unknown]
  - Dermatitis diaper [Unknown]
  - Respiratory tract infection [Unknown]
  - Foetal exposure during pregnancy [Unknown]
  - Exposure to communicable disease [Unknown]
  - Hypoglycaemia neonatal [Recovered/Resolved]
  - Emotional distress [Unknown]
  - Sneezing [Unknown]
  - Drug withdrawal syndrome neonatal [Unknown]
  - Dyspnoea [Unknown]
  - Night sweats [Unknown]
  - Pyrexia [Unknown]
  - Screaming [Unknown]
  - Cardiac murmur [Recovered/Resolved]
  - Developmental delay [Unknown]
  - Hypotonia neonatal [Unknown]
  - Gastrointestinal disorder [Unknown]
  - Hyperinsulinaemia [Unknown]
  - Drug dependence [Unknown]
  - Yawning [Unknown]
